FAERS Safety Report 6259183-3 (Version None)
Quarter: 2009Q3

REPORT INFORMATION
  Report Type: 
  Country: None (occurrence: None)
  Receive Date: 20090702
  Receipt Date: 20090617
  Transmission Date: 20100115
  Serious: Yes (Death)
  Sender: FDA-Public Use
  Company Number: 2009AL001748

PATIENT
  Age: 93 Year
  Sex: Female

DRUGS (1)
  1. DIGOXIN [Suspect]
     Indication: ATRIAL FIBRILLATION
     Dosage: PO
     Route: 048

REACTIONS (13)
  - ANGER [None]
  - ANHEDONIA [None]
  - ANXIETY [None]
  - ATRIAL FIBRILLATION [None]
  - CARDIAC FAILURE CONGESTIVE [None]
  - CORONARY ARTERY DISEASE [None]
  - ECONOMIC PROBLEM [None]
  - FALL [None]
  - INJURY [None]
  - PAIN [None]
  - PNEUMONIA [None]
  - UNEVALUABLE EVENT [None]
  - URINARY TRACT INFECTION [None]
